FAERS Safety Report 19660382 (Version 1)
Quarter: 2021Q3

REPORT INFORMATION
  Report Type: Spontaneous
  Country: CN (occurrence: CN)
  Receive Date: 20210805
  Receipt Date: 20210805
  Transmission Date: 20211014
  Serious: Yes (Other)
  Sender: FDA-Public Use
  Company Number: CN-PFIZER INC-202100944217

PATIENT
  Age: 71 Year
  Sex: Male

DRUGS (2)
  1. IMIPENEM AND CILASTATIN [Suspect]
     Active Substance: CILASTATIN SODIUM\IMIPENEM
     Indication: PNEUMONIA
     Dosage: 500 MG, Q8H ?? Q6H
     Dates: start: 20201002, end: 20201020
  2. TIGECYCLINE. [Suspect]
     Active Substance: TIGECYCLINE
     Indication: PNEUMONIA
     Dosage: 50 MG, 2X/DAY
     Dates: start: 20201003, end: 20201020

REACTIONS (5)
  - Prothrombin time prolonged [Recovered/Resolved]
  - Coagulopathy [Recovered/Resolved]
  - Hypofibrinogenaemia [Recovered/Resolved]
  - Activated partial thromboplastin time prolonged [Recovered/Resolved]
  - Thrombocytopenia [Recovered/Resolved]

NARRATIVE: CASE EVENT DATE: 202010
